FAERS Safety Report 13461680 (Version 2)
Quarter: 2017Q2

REPORT INFORMATION
  Report Type: Report from Study
  Country: CN (occurrence: CN)
  Receive Date: 20170420
  Receipt Date: 20170505
  Transmission Date: 20170830
  Serious: Yes (Hospitalization, Other)
  Sender: FDA-Public Use
  Company Number: CN-GLAXOSMITHKLINE-CN2017010035

PATIENT
  Age: 66 Year
  Sex: Female
  Weight: 46.5 kg

DRUGS (5)
  1. BISOPROLOL FUMARATE TABLET [Concomitant]
     Indication: TACHYCARDIA
     Route: 048
     Dates: start: 20170128, end: 20170203
  2. PANTOPRAZOLE SODIUM ENTERIC-COATED TABLETS [Concomitant]
     Indication: PROPHYLAXIS
     Dosage: 40 MG, BID
     Route: 048
     Dates: start: 20170118, end: 20170203
  3. DIAZEPAM TABLETS [Concomitant]
     Active Substance: DIAZEPAM
     Indication: HYPNOTHERAPY
     Route: 048
     Dates: start: 20170119, end: 20170228
  4. PLACEBO [Suspect]
     Active Substance: UNSPECIFIED INGREDIENT
     Indication: CHRONIC OBSTRUCTIVE PULMONARY DISEASE
     Dosage: UNK
     Dates: start: 20161027, end: 20170117
  5. BISOPROLOL FUMARATE TABLET [Concomitant]
     Route: 048
     Dates: start: 20170126, end: 20170126

REACTIONS (2)
  - Chronic obstructive pulmonary disease [Recovered/Resolved]
  - Lung infection [Recovered/Resolved]

NARRATIVE: CASE EVENT DATE: 20161223
